FAERS Safety Report 8251089-3 (Version None)
Quarter: 2012Q1

REPORT INFORMATION
  Report Type: 
  Country: None (occurrence: None)
  Receive Date: 20120328
  Receipt Date: 20120315
  Transmission Date: 20120608
  Serious: Yes (Life-Threatening, Hospitalization)
  Sender: FDA-Public Use
  Company Number: WAES 1203USA02995

PATIENT
  Age: 57 Year
  Sex: Female
  Weight: 63.05 kg

DRUGS (4)
  1. DECADRON [Suspect]
     Indication: PRODUCT USED FOR UNKNOWN INDICATION
     Dosage: PO
     Route: 048
  2. CAP VORINOSTAT UNK [Suspect]
     Indication: GLIOBLASTOMA MULTIFORME
     Dosage: 300 MG/5XW/PO
     Route: 048
     Dates: start: 20120206, end: 20120224
  3. TEMOZOLOMIDE [Suspect]
     Indication: GLIOBLASTOMA MULTIFORME
     Dosage: 75 MG/M [2]/DAILY/PO
     Route: 048
     Dates: start: 20120206, end: 20120223
  4. DAPSONE [Suspect]
     Indication: PRODUCT USED FOR UNKNOWN INDICATION

REACTIONS (6)
  - LYMPHOCYTE COUNT DECREASED [None]
  - SMALL INTESTINAL PERFORATION [None]
  - GASTROINTESTINAL INFECTION [None]
  - GASTROINTESTINAL HAEMORRHAGE [None]
  - ABSCESS [None]
  - DIVERTICULITIS [None]
